FAERS Safety Report 6633684-8 (Version None)
Quarter: 2010Q1

REPORT INFORMATION
  Report Type: 
  Country: None (occurrence: None)
  Receive Date: 20100314
  Receipt Date: 20100303
  Transmission Date: 20100710
  Serious: Yes (Hospitalization)
  Sender: FDA-Public Use
  Company Number: JP-JNJFOC-20091006940

PATIENT
  Sex: Female
  Weight: 45 kg

DRUGS (12)
  1. REMICADE [Suspect]
     Indication: RHEUMATOID ARTHRITIS
     Route: 042
     Dates: start: 20071212, end: 20090908
  2. REMICADE [Suspect]
     Route: 042
     Dates: start: 20071212, end: 20090908
  3. FOLIAMIN [Concomitant]
     Indication: RHEUMATOID ARTHRITIS
     Route: 048
  4. PREDNISOLONE [Concomitant]
     Indication: RHEUMATOID ARTHRITIS
     Route: 048
  5. VOLTAREN [Concomitant]
     Indication: RHEUMATOID ARTHRITIS
     Route: 048
  6. ALFAROL [Concomitant]
     Indication: OSTEOPOROSIS
     Dosage: DOSE: 1RG
     Route: 048
  7. MUCOSTA [Concomitant]
     Indication: GASTRITIS
     Route: 048
  8. GLAKAY [Concomitant]
     Indication: OSTEOPOROSIS
     Route: 048
  9. RHEUMATREX [Concomitant]
     Indication: RHEUMATOID ARTHRITIS
     Route: 048
  10. BENET [Concomitant]
     Indication: OSTEOPOROSIS
     Route: 048
  11. METHOTREXATE [Concomitant]
     Indication: RHEUMATOID ARTHRITIS
     Route: 048
  12. TAKEPRON [Concomitant]
     Indication: ULCER
     Route: 048

REACTIONS (6)
  - ANAPHYLACTIC SHOCK [None]
  - DRUG SPECIFIC ANTIBODY PRESENT [None]
  - HEADACHE [None]
  - HENOCH-SCHONLEIN PURPURA [None]
  - NEUROPATHY PERIPHERAL [None]
  - OSTEOMYELITIS [None]
